FAERS Safety Report 8545794-9 (Version None)
Quarter: 2012Q3

REPORT INFORMATION
  Report Type: 
  Country: None (occurrence: None)
  Receive Date: 20120727
  Receipt Date: 20120720
  Transmission Date: 20120928
  Serious: Yes (Death, Hospitalization)
  Sender: FDA-Public Use
  Company Number: VN-BAXTER-2012BAX012018

PATIENT
  Age: 34 Year
  Sex: Male

DRUGS (1)
  1. DIANEAL [Suspect]
     Route: 033
     Dates: start: 20111118, end: 20120706

REACTIONS (3)
  - CEREBROVASCULAR ACCIDENT [None]
  - HYPERTENSION [None]
  - CATHETER SITE INFECTION [None]
